FAERS Safety Report 8343074-8 (Version None)
Quarter: 2012Q2

REPORT INFORMATION
  Report Type: 
  Country: None (occurrence: None)
  Receive Date: 20120508
  Receipt Date: 20120420
  Transmission Date: 20120825
  Serious: No
  Sender: FDA-Public Use
  Company Number: US-BAYER-200942055NA

PATIENT
  Age: 42 Year
  Sex: Female
  Weight: 64.545 kg

DRUGS (3)
  1. MIRENA [Suspect]
     Indication: MENORRHAGIA
     Dosage: CONTINUOUS
     Route: 015
     Dates: start: 20090605
  2. LEXAPRO [Concomitant]
     Indication: PRODUCT USED FOR UNKNOWN INDICATION
     Dosage: UNKNOWN DOSAGE
  3. UNKNOWN DRUG [Concomitant]
     Dosage: UNKNOWN PILL AND UNKNOWN DOSAGE
     Route: 048

REACTIONS (4)
  - MENORRHAGIA [None]
  - MEDICAL DEVICE COMPLICATION [None]
  - DEVICE DIFFICULT TO USE [None]
  - ABDOMINAL PAIN LOWER [None]
